FAERS Safety Report 24680004 (Version 2)
Quarter: 2024Q4

REPORT INFORMATION
  Report Type: Spontaneous
  Country: JP (occurrence: JP)
  Receive Date: 20241129
  Receipt Date: 20241216
  Transmission Date: 20250115
  Serious: Yes (Other)
  Sender: ASTELLAS
  Company Number: JP-ASTELLAS-2024-AER-020500

PATIENT
  Age: 75 Year
  Sex: Male

DRUGS (2)
  1. XTANDI [Suspect]
     Active Substance: ENZALUTAMIDE
     Indication: Hormone-dependent prostate cancer
     Dosage: BEFORE BEDTIME
     Route: 048
     Dates: start: 20230529, end: 20240104
  2. DEGARELIX [Concomitant]
     Active Substance: DEGARELIX
     Indication: Hormone-dependent prostate cancer
     Route: 065
     Dates: start: 2023

REACTIONS (2)
  - Hormone-refractory prostate cancer [Not Recovered/Not Resolved]
  - Therapeutic response decreased [Unknown]

NARRATIVE: CASE EVENT DATE: 20240104
